FAERS Safety Report 25004205 (Version 3)
Quarter: 2025Q2

REPORT INFORMATION
  Report Type: Spontaneous
  Country: JP (occurrence: JP)
  Receive Date: 20250224
  Receipt Date: 20250403
  Transmission Date: 20250717
  Serious: Yes (Life-Threatening, Hospitalization, Other)
  Sender: OTSUKA
  Company Number: JP-MMM-Otsuka-TIX8BAZ9

PATIENT
  Age: 84 Year
  Sex: Female

DRUGS (15)
  1. REXULTI [Suspect]
     Active Substance: BREXPIPRAZOLE
     Indication: Dementia Alzheimer^s type
     Route: 048
     Dates: start: 20250118, end: 20250124
  2. REXULTI [Suspect]
     Active Substance: BREXPIPRAZOLE
     Indication: Agitation
     Route: 048
     Dates: start: 20250111, end: 20250117
  3. REXULTI [Suspect]
     Active Substance: BREXPIPRAZOLE
     Indication: Poriomania
  4. REXULTI [Suspect]
     Active Substance: BREXPIPRAZOLE
     Indication: Agitation
  5. REXULTI [Suspect]
     Active Substance: BREXPIPRAZOLE
     Indication: Aggression
  6. REXULTI [Suspect]
     Active Substance: BREXPIPRAZOLE
     Indication: Anger
  7. REXULTI [Suspect]
     Active Substance: BREXPIPRAZOLE
     Indication: Irritability
  8. MEMANTINE HYDROCHLORIDE [Suspect]
     Active Substance: MEMANTINE HYDROCHLORIDE
     Indication: Product used for unknown indication
     Route: 048
     Dates: start: 20241223, end: 20250113
  9. MEMANTINE HYDROCHLORIDE [Suspect]
     Active Substance: MEMANTINE HYDROCHLORIDE
     Route: 048
     Dates: start: 20241129, end: 20241206
  10. MEMANTINE HYDROCHLORIDE [Suspect]
     Active Substance: MEMANTINE HYDROCHLORIDE
     Route: 048
     Dates: start: 20241207, end: 20241213
  11. MEMANTINE HYDROCHLORIDE [Suspect]
     Active Substance: MEMANTINE HYDROCHLORIDE
     Route: 048
     Dates: start: 20241214, end: 20241222
  12. INDAPAMIDE [Suspect]
     Active Substance: INDAPAMIDE
     Indication: Product used for unknown indication
     Route: 048
     Dates: start: 20240706, end: 20240801
  13. NIFEDIPINE [Concomitant]
     Active Substance: NIFEDIPINE
     Indication: Product used for unknown indication
     Route: 048
     Dates: start: 20240706, end: 20250123
  14. TENORMIN [Concomitant]
     Active Substance: ATENOLOL
     Indication: Product used for unknown indication
     Route: 048
     Dates: start: 20240706, end: 20250123
  15. DONEPEZIL HYDROCHLORIDE [Concomitant]
     Active Substance: DONEPEZIL HYDROCHLORIDE
     Indication: Product used for unknown indication
     Route: 048
     Dates: start: 20240706, end: 20250123

REACTIONS (5)
  - Respiratory failure [Not Recovered/Not Resolved]
  - Hypothermia [Not Recovered/Not Resolved]
  - Altered state of consciousness [Not Recovered/Not Resolved]
  - Muscle rigidity [Not Recovered/Not Resolved]
  - Electrolyte imbalance [Unknown]

NARRATIVE: CASE EVENT DATE: 20250125
